FAERS Safety Report 8276486-1 (Version None)
Quarter: 2012Q2

REPORT INFORMATION
  Report Type: 
  Country: None (occurrence: None)
  Receive Date: 20120412
  Receipt Date: 20120407
  Transmission Date: 20120825
  Serious: Yes (Other)
  Sender: FDA-Public Use
  Company Number: US-PFIZER INC-2012087583

PATIENT
  Age: 17 Year
  Sex: Male

DRUGS (1)
  1. ROBITUSSIN DM [Suspect]
     Dosage: UNK
     Route: 065

REACTIONS (1)
  - DRUG ABUSE [None]
